FAERS Safety Report 4874798-2 (Version None)
Quarter: 2006Q1

REPORT INFORMATION
  Report Type: 
  Country: None (occurrence: None)
  Receive Date: 20060104
  Receipt Date: 20051219
  Transmission Date: 20060701
  Serious: Yes (Hospitalization)
  Sender: FDA-Public Use
  Company Number: 2005159093

PATIENT
  Age: 72 Year
  Sex: Female
  Weight: 80 kg

DRUGS (3)
  1. LYRICA [Suspect]
     Indication: TRIGEMINAL NEURALGIA
     Dosage: 450 MG (225 MG, 2 IN 1 D) ORAL
     Route: 048
  2. STALEVO (CARBIDOPA, ENTACAPONE, LEVODOPA) [Concomitant]
  3. ALL OTHER THERAPEUTIC PRODUCTS [Concomitant]

REACTIONS (5)
  - BLOOD LACTATE DEHYDROGENASE INCREASED [None]
  - ECCHYMOSIS [None]
  - PURPURA [None]
  - RED BLOOD CELL SEDIMENTATION RATE INCREASED [None]
  - SEPSIS [None]
